FAERS Safety Report 8957954 (Version 2)
Quarter: 2013Q1

REPORT INFORMATION
  Report Type: Spontaneous
  Country: DE (occurrence: DE)
  Receive Date: 20121211
  Receipt Date: 20130201
  Transmission Date: 20140127
  Serious: Yes (Hospitalization, Other)
  Sender: FDA-Public Use
  Company Number: DE-JNJFOC-20121114860

PATIENT
  Sex: Female
  Weight: 66 kg

DRUGS (5)
  1. XEPLION [Suspect]
     Indication: SCHIZOAFFECTIVE DISORDER DEPRESSIVE TYPE
     Route: 030
     Dates: start: 20120105
  2. XEPLION [Suspect]
     Indication: SCHIZOAFFECTIVE DISORDER DEPRESSIVE TYPE
     Route: 030
     Dates: start: 20120112, end: 20121212
  3. XEPLION [Suspect]
     Indication: AFFECTIVE DISORDER
     Route: 030
     Dates: start: 20120112, end: 20121212
  4. XEPLION [Suspect]
     Indication: AFFECTIVE DISORDER
     Route: 030
     Dates: start: 20120105
  5. VALPROIC ACID [Suspect]
     Indication: PRODUCT USED FOR UNKNOWN INDICATION
     Route: 065

REACTIONS (5)
  - Arrhythmia [Recovered/Resolved]
  - Restlessness [Recovered/Resolved]
  - Musculoskeletal stiffness [Recovered/Resolved]
  - Chills [Recovered/Resolved]
  - Pallor [Recovered/Resolved]
